FAERS Safety Report 13753273 (Version 1)
Quarter: 2017Q3

REPORT INFORMATION
  Report Type: Report from Study
  Country: None (occurrence: US)
  Receive Date: 20170714
  Receipt Date: 20170714
  Transmission Date: 20171127
  Serious: No
  Sender: FDA-Public Use
  Company Number: US-IPSEN BIOPHARMACEUTICALS, INC.-2013-0686

PATIENT
  Age: 3 Year
  Sex: Male
  Weight: 11.5 kg

DRUGS (2)
  1. INCRELEX [Suspect]
     Active Substance: MECASERMIN
     Indication: INSULIN-LIKE GROWTH FACTOR DECREASED
     Route: 058
     Dates: start: 20121118, end: 20130107
  2. INCRELEX [Suspect]
     Active Substance: MECASERMIN
     Route: 058
     Dates: start: 20130107

REACTIONS (6)
  - Feeling abnormal [Not Recovered/Not Resolved]
  - Decreased appetite [None]
  - Drug dose omission [Unknown]
  - Vomiting [None]
  - Abdominal discomfort [None]
  - Nasopharyngitis [Not Recovered/Not Resolved]

NARRATIVE: CASE EVENT DATE: 20130128
